FAERS Safety Report 10290855 (Version 1)
Quarter: 2014Q3

REPORT INFORMATION
  Report Type: Spontaneous
  Country: IT (occurrence: None)
  Receive Date: 20140708
  Receipt Date: 20140708
  Transmission Date: 20150326
  Serious: Yes (Death, Hospitalization)
  Sender: FDA-Public Use
  Company Number: AUR-APL-2014-07151

PATIENT
  Age: 64 Year
  Sex: Female

DRUGS (3)
  1. MEROPENEM (MEROPENEM) [Suspect]
     Active Substance: MEROPENEM
     Indication: PRODUCT USED FOR UNKNOWN INDICATION
  2. LEVOFLOXACIN (LEVOFLOXACIN) UNKNOWN, 1000MG [Suspect]
     Active Substance: LEVOFLOXACIN
     Indication: PRODUCT USED FOR UNKNOWN INDICATION
  3. CIPROFLOXACIN (CIPROFLOXACIN) [Suspect]
     Active Substance: CIPROFLOXACIN
     Indication: PRODUCT USED FOR UNKNOWN INDICATION

REACTIONS (3)
  - Septic shock [None]
  - Clostridium difficile colitis [None]
  - Clostridium difficile infection [None]
